FAERS Safety Report 8151025-4 (Version None)
Quarter: 2012Q1

REPORT INFORMATION
  Report Type: 
  Country: None (occurrence: None)
  Receive Date: 20120220
  Receipt Date: 20120216
  Transmission Date: 20120608
  Serious: Yes (Life-Threatening, Hospitalization)
  Sender: FDA-Public Use
  Company Number: US-ABBOTT-12P-163-0905519-00

PATIENT
  Sex: Male
  Weight: 86.26 kg

DRUGS (2)
  1. HUMIRA [Suspect]
     Indication: COLITIS ULCERATIVE
     Dates: start: 20110701, end: 20120201
  2. ACETAMINOPHEN [Concomitant]
     Indication: PAIN

REACTIONS (11)
  - HYPOTENSION [None]
  - BOWEL MOVEMENT IRREGULARITY [None]
  - COLITIS [None]
  - FLATULENCE [None]
  - CLOSTRIDIAL INFECTION [None]
  - CONSTIPATION [None]
  - RECTAL HAEMORRHAGE [None]
  - OFF LABEL USE [None]
  - CHEST DISCOMFORT [None]
  - INJECTION SITE ERYTHEMA [None]
  - INJECTION SITE PAIN [None]
